FAERS Safety Report 4527248-X (Version None)
Quarter: 2004Q4

REPORT INFORMATION
  Report Type: 
  Country: None (occurrence: None)
  Receive Date: 20041214
  Receipt Date: 20041214
  Transmission Date: 20050328
  Serious: No
  Sender: FDA-Public Use
  Company Number: None

PATIENT
  Age: 50 Year
  Sex: Female
  Weight: 85 kg

DRUGS (2)
  1. DOXORUBICIN [Suspect]
     Indication: INFLAMMATORY CARCINOMA OF THE BREAST
     Dosage: 165MG/M2  96 HRS CON   INTRAVENOUS
     Route: 042
     Dates: start: 20041118, end: 20041123
  2. CYTOXAN [Suspect]
     Dosage: 100MG/KG  ONCE ????  INTRAVENOUS
     Route: 042
     Dates: start: 20041122, end: 20041123

REACTIONS (8)
  - DRUG TOXICITY [None]
  - FEBRILE NEUTROPENIA [None]
  - GRAM STAIN POSITIVE [None]
  - HAEMORRHAGE [None]
  - MUCOSAL INFLAMMATION [None]
  - OBSTRUCTIVE AIRWAYS DISORDER [None]
  - PNEUMOMEDIASTINUM [None]
  - SWELLING [None]
